FAERS Safety Report 10228785 (Version 1)
Quarter: 2014Q2

REPORT INFORMATION
  Report Type: Spontaneous
  Country: CH (occurrence: CH)
  Receive Date: 20140610
  Receipt Date: 20140610
  Transmission Date: 20141212
  Serious: Yes (Disabling, Other)
  Sender: FDA-Public Use
  Company Number: CH-ASTRAZENECA-2014SE38925

PATIENT
  Age: 71 Year
  Sex: Male

DRUGS (1)
  1. CRESTOR [Suspect]
     Route: 048
     Dates: start: 20110601, end: 20130927

REACTIONS (5)
  - Dyspnoea [Recovered/Resolved]
  - Headache [Recovered/Resolved]
  - Chest pain [Recovered/Resolved]
  - Joint dislocation [Recovered/Resolved]
  - Bronchopneumonia [Unknown]
